FAERS Safety Report 17535397 (Version 1)
Quarter: 2020Q1

REPORT INFORMATION
  Report Type: Spontaneous
  Country: FR (occurrence: FR)
  Receive Date: 20200313
  Receipt Date: 20200313
  Transmission Date: 20200409
  Serious: Yes (Other)
  Sender: FDA-Public Use
  Company Number: FR-SA-2020SA059859

PATIENT
  Age: 70 Year
  Sex: Female

DRUGS (2)
  1. JANUVIA [Concomitant]
     Active Substance: SITAGLIPTIN PHOSPHATE
     Dosage: UNK
  2. TOUJEO [Suspect]
     Active Substance: INSULIN GLARGINE
     Dosage: UNK
     Route: 065

REACTIONS (8)
  - Visual impairment [Unknown]
  - Pallor [Unknown]
  - Pain [Unknown]
  - Cataract [Unknown]
  - Pain in extremity [Unknown]
  - Gait inability [Unknown]
  - Hypoaesthesia [Unknown]
  - Formication [Unknown]
